FAERS Safety Report 4277565-6 (Version None)
Quarter: 2004Q1

REPORT INFORMATION
  Report Type: 
  Country: None (occurrence: None)
  Receive Date: 20040121
  Receipt Date: 20040121
  Transmission Date: 20041129
  Serious: Yes (Hospitalization)
  Sender: FDA-Public Use
  Company Number: None

PATIENT
  Sex: Female
  Weight: 100 kg

DRUGS (4)
  1. DROTRECOGIN [Suspect]
     Indication: SEPSIS
     Dosage: 24 MCG/KG/HR X 96H
     Dates: start: 20031112, end: 20031117
  2. DILANTIN [Concomitant]
  3. ZOSYN [Concomitant]
  4. PROTONIX [Concomitant]

REACTIONS (1)
  - HAEMORRHAGE [None]
